FAERS Safety Report 5264446-4 (Version None)
Quarter: 2007Q1

REPORT INFORMATION
  Report Type: 
  Country: None (occurrence: None)
  Receive Date: 20070309
  Receipt Date: 20070226
  Transmission Date: 20070707
  Serious: Yes (Death, Hospitalization, Other)
  Sender: FDA-Public Use
  Company Number: 2006-02418

PATIENT
  Age: 68 Year
  Sex: Male
  Weight: 80 kg

DRUGS (26)
  1. VELCADE [Suspect]
     Indication: MULTIPLE MYELOMA
     Dosage: SEE IMGE
     Dates: start: 20060515, end: 20060525
  2. VELCADE [Suspect]
     Indication: MULTIPLE MYELOMA
     Dosage: SEE IMGE
     Dates: start: 20050416
  3. VELCADE [Suspect]
     Indication: MULTIPLE MYELOMA
     Dosage: SEE IMGE
     Dates: start: 20050601
  4. VELCADE [Suspect]
     Indication: MULTIPLE MYELOMA
     Dosage: SEE IMGE
     Dates: start: 20060227
  5. VELCADE [Suspect]
     Indication: MULTIPLE MYELOMA
     Dosage: SEE IMGE
     Dates: start: 20060515
  6. DEXAMETHASONE [Suspect]
     Indication: MULTIPLE MYELOMA
     Dates: start: 20060807, end: 20060810
  7. DEXAMETHASONE [Suspect]
     Indication: MULTIPLE MYELOMA
     Dates: start: 20050416
  8. DEXAMETHASONE [Suspect]
     Indication: MULTIPLE MYELOMA
     Dates: start: 20050601
  9. DEXAMETHASONE [Suspect]
     Indication: MULTIPLE MYELOMA
     Dates: start: 20060227
  10. DEXAMETHASONE [Suspect]
     Indication: MULTIPLE MYELOMA
     Dates: start: 20060515
  11. THALIDOMIDE [Suspect]
     Indication: MULTIPLE MYELOMA
     Dates: start: 20060714, end: 20060816
  12. THALIDOMIDE [Suspect]
     Indication: MULTIPLE MYELOMA
     Dates: start: 20050416
  13. THALIDOMIDE [Suspect]
     Indication: MULTIPLE MYELOMA
     Dates: start: 20050601
  14. THALIDOMIDE [Suspect]
     Indication: MULTIPLE MYELOMA
     Dates: start: 20060227
  15. THALIDOMIDE [Suspect]
     Indication: MULTIPLE MYELOMA
     Dates: start: 20060515
  16. CISPLATIN [Concomitant]
  17. DOXORUBICIN HCL [Concomitant]
  18. CYCLOPHOSPHAMIDE [Concomitant]
  19. ETOPOSIDE [Concomitant]
  20. MELPHALAN [Concomitant]
  21. LOVENOX [Concomitant]
  22. ACYCLOVIR [Concomitant]
  23. DIFLUCAN [Concomitant]
  24. LEVAQUIN [Concomitant]
  25. PROCRIT [Concomitant]
  26. LORAZEPAM [Concomitant]

REACTIONS (9)
  - CERVICAL SPINAL STENOSIS [None]
  - CSF TEST ABNORMAL [None]
  - ENCEPHALITIS VIRAL [None]
  - INTERVERTEBRAL DISC DEGENERATION [None]
  - MENINGITIS [None]
  - MONOPLEGIA [None]
  - MUSCULAR WEAKNESS [None]
  - PNEUMOTHORAX [None]
  - SPINAL COMPRESSION FRACTURE [None]
